FAERS Safety Report 7232285-0 (Version None)
Quarter: 2011Q1

REPORT INFORMATION
  Report Type: 
  Country: None (occurrence: None)
  Receive Date: 20110119
  Receipt Date: 20110110
  Transmission Date: 20110831
  Serious: No
  Sender: FDA-Public Use
  Company Number: US-BIOGENIDEC-2011BI001850

PATIENT
  Sex: Female

DRUGS (1)
  1. TYSABRI [Suspect]
     Indication: MULTIPLE SCLEROSIS
     Route: 042
     Dates: start: 20070907, end: 20100727

REACTIONS (5)
  - MEMORY IMPAIRMENT [None]
  - GENERAL SYMPTOM [None]
  - HEADACHE [None]
  - DIPLOPIA [None]
  - OPTIC NEURITIS [None]
